FAERS Safety Report 12261145 (Version 1)
Quarter: 2016Q2

REPORT INFORMATION
  Report Type: Spontaneous
  Country: US (occurrence: US)
  Receive Date: 20160412
  Receipt Date: 20160412
  Transmission Date: 20160815
  Serious: Yes (Hospitalization, Other)
  Sender: FDA-Public Use
  Company Number: ADR-2015-01249

PATIENT
  Age: 48 Year
  Sex: Male

DRUGS (2)
  1. BACLOFEN. [Suspect]
     Active Substance: BACLOFEN
     Dosage: 625.2MCG/DAY
     Route: 037
     Dates: end: 20150625
  2. LIORESAL [Suspect]
     Active Substance: BACLOFEN
     Route: 037
     Dates: start: 20150625

REACTIONS (3)
  - Medical device site discomfort [Unknown]
  - Pocket erosion [Unknown]
  - Implant site dehiscence [Unknown]
